FAERS Safety Report 20795537 (Version 1)
Quarter: 2022Q2

REPORT INFORMATION
  Report Type: Spontaneous
  Country: US (occurrence: None)
  Receive Date: 20220504
  Receipt Date: 20220504
  Transmission Date: 20220721
  Serious: Yes (unspecified)
  Sender: FDA-Public Use
  Company Number: None

PATIENT
  Sex: Male

DRUGS (3)
  1. GONADORELIN [Suspect]
     Active Substance: GONADORELIN
     Indication: Testicular atrophy
     Dosage: FREQUENCY : TWICE A WEEK;?
     Route: 058
     Dates: start: 20200908
  2. GONADORELIN [Suspect]
     Active Substance: GONADORELIN
     Indication: Hormone replacement therapy
  3. Testosterone Cypionate/Anastrozole 200mg/0.5mg/ml [Concomitant]
     Dates: start: 20180426

REACTIONS (5)
  - Urticaria [None]
  - Injection site swelling [None]
  - Injection site pruritus [None]
  - Recalled product administered [None]
  - Injection related reaction [None]
